FAERS Safety Report 21466317 (Version 4)
Quarter: 2023Q1

REPORT INFORMATION
  Report Type: Report from Study
  Country: US (occurrence: US)
  Receive Date: 20221017
  Receipt Date: 20230104
  Transmission Date: 20230417
  Serious: No
  Sender: FDA-Public Use
  Company Number: US-BIOVITRUM-2022US11824

PATIENT
  Sex: Male

DRUGS (2)
  1. KINERET [Suspect]
     Active Substance: ANAKINRA
     Indication: Rheumatoid arthritis
     Dosage: 100MG/0.67ML
     Dates: start: 20220930
  2. KINERET [Suspect]
     Active Substance: ANAKINRA
     Indication: Gout
     Dates: start: 20221005

REACTIONS (5)
  - Influenza like illness [Unknown]
  - Malaise [Not Recovered/Not Resolved]
  - Chills [Unknown]
  - Injection site erythema [Unknown]
  - Product dose omission issue [Unknown]
